FAERS Safety Report 8257922-3 (Version None)
Quarter: 2012Q2

REPORT INFORMATION
  Report Type: 
  Country: None (occurrence: None)
  Receive Date: 20120404
  Receipt Date: 20120330
  Transmission Date: 20120825
  Serious: No
  Sender: FDA-Public Use
  Company Number: US-PFIZER INC-2012081518

PATIENT
  Sex: Female

DRUGS (1)
  1. RAPAMUNE [Suspect]
     Indication: RENAL TRANSPLANT
     Dosage: 1.5 MG, DAILY
     Dates: start: 20120113

REACTIONS (1)
  - STOMATITIS [None]
